FAERS Safety Report 9909469 (Version 1)
Quarter: 2014Q1

REPORT INFORMATION
  Report Type: Spontaneous
  Country: SE (occurrence: None)
  Receive Date: 20140212
  Receipt Date: 20140212
  Transmission Date: 20141002
  Serious: Yes (Death)
  Sender: FDA-Public Use
  Company Number: 2014P1000939

PATIENT
  Age: 37 Year
  Sex: Male

DRUGS (7)
  1. CITALOPRAM [Suspect]
  2. MIANSERINE [Suspect]
  3. DIAZEPAM [Suspect]
  4. NORDAZEPAM [Suspect]
  5. CAFFEINE [Suspect]
  6. PARACETAMOL [Suspect]
  7. ETHANOL [Suspect]

REACTIONS (2)
  - Completed suicide [None]
  - Asphyxia [None]
